FAERS Safety Report 9523256 (Version 1)
Quarter: 2013Q3

REPORT INFORMATION
  Report Type: Report from Study
  Country: US (occurrence: US)
  Receive Date: 20130913
  Receipt Date: 20130913
  Transmission Date: 20140515
  Serious: Yes (Other)
  Sender: FDA-Public Use
  Company Number: US-PURDUE-USA-2013-0106239

PATIENT
  Age: 55 Year
  Sex: Male

DRUGS (1)
  1. OXYCONTIN (NDA 22-272) [Suspect]
     Indication: PAIN
     Dosage: 60 MG, Q12H
     Route: 048

REACTIONS (12)
  - Pulmonary mass [Not Recovered/Not Resolved]
  - Renal mass [Not Recovered/Not Resolved]
  - Chronic obstructive pulmonary disease [Not Recovered/Not Resolved]
  - Fibromyalgia [Not Recovered/Not Resolved]
  - Nephrolithiasis [Unknown]
  - Intervertebral disc protrusion [Unknown]
  - Prostate infection [Unknown]
  - Lung infection [Unknown]
  - Blood testosterone decreased [Unknown]
  - Hypertension [Unknown]
  - Chest pain [Unknown]
  - Inadequate analgesia [Not Recovered/Not Resolved]
